FAERS Safety Report 6153214-7 (Version None)
Quarter: 2009Q2

REPORT INFORMATION
  Report Type: 
  Country: None (occurrence: None)
  Receive Date: 20090413
  Receipt Date: 20090408
  Transmission Date: 20091009
  Serious: Yes (Hospitalization)
  Sender: FDA-Public Use
  Company Number: CG-MERCK-0904USA01120

PATIENT
  Age: 7 Year
  Sex: Male

DRUGS (1)
  1. STROMECTOL [Suspect]
     Indication: ONCHOCERCIASIS
     Route: 048
     Dates: start: 20081212, end: 20081212

REACTIONS (5)
  - ASTHENIA [None]
  - CONSTIPATION [None]
  - GAIT DISTURBANCE [None]
  - PYREXIA [None]
  - URINARY RETENTION [None]
